FAERS Safety Report 10215684 (Version 1)
Quarter: 2014Q2

REPORT INFORMATION
  Report Type: Spontaneous
  Country: US (occurrence: None)
  Receive Date: 20140603
  Receipt Date: 20140603
  Transmission Date: 20141212
  Serious: No
  Sender: FDA-Public Use
  Company Number: None

PATIENT
  Age: 73 Year
  Sex: Male

DRUGS (9)
  1. GLEEVEC [Suspect]
     Indication: MALIGNANT CONNECTIVE TISSUE NEOPLASM
     Route: 048
     Dates: start: 20120914
  2. GLEEVEC [Suspect]
     Indication: SOFT TISSUE SARCOMA
     Route: 048
     Dates: start: 20120914
  3. GLEEVEC [Suspect]
     Indication: NEOPLASM MALIGNANT
     Route: 048
     Dates: start: 20120914
  4. AVODART [Concomitant]
  5. TAMSULOSIN [Concomitant]
  6. SIMVASTATIN [Concomitant]
  7. PREDNISOLONE [Concomitant]
  8. ACETATE OPTH SUSP [Concomitant]
  9. BENADRYL [Concomitant]

REACTIONS (2)
  - Eye haemorrhage [None]
  - Retinal detachment [None]
